FAERS Safety Report 24684979 (Version 1)
Quarter: 2024Q4

REPORT INFORMATION
  Report Type: Spontaneous
  Country: US (occurrence: US)
  Receive Date: 20241202
  Receipt Date: 20241202
  Transmission Date: 20250115
  Serious: Yes (Other)
  Sender: COOPERSURGICAL
  Company Number: US-COOPERSURGICAL, INC.-2024CPS003626

PATIENT
  Age: 44 Year
  Sex: Female
  Weight: 66.667 kg

DRUGS (1)
  1. PARAGARD T 380A [Suspect]
     Active Substance: COPPER
     Indication: Contraception
     Dosage: UNK
     Route: 015
     Dates: start: 20150611

REACTIONS (14)
  - Reproductive complication associated with device [Not Recovered/Not Resolved]
  - Device breakage [Not Recovered/Not Resolved]
  - Foreign body in reproductive tract [Not Recovered/Not Resolved]
  - Complication of device removal [Not Recovered/Not Resolved]
  - Dermatitis [Unknown]
  - Anxiety [Not Recovered/Not Resolved]
  - Urinary tract infection [Unknown]
  - Back pain [Not Recovered/Not Resolved]
  - Limb injury [Unknown]
  - Neck injury [Unknown]
  - Back injury [Unknown]
  - Hot flush [Not Recovered/Not Resolved]
  - Dyspareunia [Not Recovered/Not Resolved]
  - Procedural pain [Unknown]

NARRATIVE: CASE EVENT DATE: 20200514
